FAERS Safety Report 5513024-8 (Version None)
Quarter: 2007Q4

REPORT INFORMATION
  Report Type: 
  Country: None (occurrence: None)
  Receive Date: 20071112
  Receipt Date: 20071102
  Transmission Date: 20080405
  Serious: Yes (Other)
  Sender: FDA-Public Use
  Company Number: HQWYE172222SEP04

PATIENT
  Sex: Female

DRUGS (3)
  1. PREMPRO [Suspect]
     Dosage: UNSPECIFIED
     Route: 048
     Dates: start: 19960101
  2. PROVERA [Suspect]
     Dosage: UNSPECIFIED
     Route: 048
     Dates: start: 19980101
  3. PREMARIN [Suspect]
     Dosage: UNSPECIFIED
     Route: 048
     Dates: start: 19890101

REACTIONS (1)
  - BREAST CANCER METASTATIC [None]
